FAERS Safety Report 5035544-5 (Version None)
Quarter: 2006Q2

REPORT INFORMATION
  Report Type: 
  Country: None (occurrence: None)
  Receive Date: 20060526
  Receipt Date: 20060306
  Transmission Date: 20061013
  Serious: No
  Sender: FDA-Public Use
  Company Number: 221443

PATIENT
  Age: 54 Year
  Sex: Female
  Weight: 62.6 kg

DRUGS (3)
  1. RAPTIVA [Suspect]
     Indication: PSORIASIS
     Dosage: 0.6 ML, 1/WEEK, SUBCUTANEOUS
     Route: 058
     Dates: start: 20051003, end: 20051101
  2. CLARITIN [Concomitant]
  3. WELLBUTRIN [Concomitant]

REACTIONS (2)
  - ARTHRITIS [None]
  - VISUAL DISTURBANCE [None]
